FAERS Safety Report 4935229-7 (Version None)
Quarter: 2006Q1

REPORT INFORMATION
  Report Type: 
  Country: None (occurrence: None)
  Receive Date: 20060302
  Receipt Date: 20060209
  Transmission Date: 20060701
  Serious: Yes (Other)
  Sender: FDA-Public Use
  Company Number: US200602002219

PATIENT
  Age: 47 Year
  Sex: Male

DRUGS (5)
  1. HUMULIN 70/30 [Suspect]
     Indication: DIABETES MELLITUS
     Dates: end: 20060101
  2. HUMULIN R [Suspect]
     Indication: DIABETES MELLITUS
     Dates: end: 20060101
  3. HUMALONG LISPRO (LISPRO LISPRO), PEN, DISPOSABLE [Concomitant]
     Indication: DIABETES MELLITUS
     Dates: start: 20060101
  4. HUMALOG PEN (HUMALOG PEN) PEN, DISPOSABLE [Concomitant]
  5. LANTUS [Concomitant]

REACTIONS (7)
  - BLISTER [None]
  - DEVICE FAILURE [None]
  - EYE DISORDER [None]
  - PHARMACEUTICAL PRODUCT COMPLAINT [None]
  - POSTOPERATIVE WOUND INFECTION [None]
  - TOE AMPUTATION [None]
  - WRONG TECHNIQUE IN DRUG USAGE PROCESS [None]
